FAERS Safety Report 14015925 (Version 2)
Quarter: 2018Q1

REPORT INFORMATION
  Report Type: Report from Study
  Country: US (occurrence: US)
  Receive Date: 20170927
  Receipt Date: 20180125
  Transmission Date: 20180508
  Serious: Yes (Hospitalization)
  Sender: FDA-Public Use
  Company Number: US-SEATTLE GENETICS-2017SGN02215

PATIENT
  Age: 16 Year
  Sex: Female
  Weight: 71.3 kg

DRUGS (20)
  1. VINCRISTINE [Suspect]
     Active Substance: VINCRISTINE
     Indication: HODGKIN^S DISEASE
     Dosage: 1.4 MG/M2, QCYCLE
     Route: 042
     Dates: end: 20170816
  2. CYCLOPHOSPHAMIDE. [Suspect]
     Active Substance: CYCLOPHOSPHAMIDE
     Indication: HODGKIN^S DISEASE
     Dosage: 600 MG/M2, QCYCLE
     Route: 042
     Dates: start: 20170809, end: 20170810
  3. PREDNISONE. [Suspect]
     Active Substance: PREDNISONE
     Indication: HODGKIN^S DISEASE
     Dosage: 20 MG/M2, QCYCLE
     Route: 048
     Dates: start: 20170809, end: 20170815
  4. ATIVAN [Concomitant]
     Active Substance: LORAZEPAM
  5. MELATONIN [Concomitant]
     Active Substance: MELATONIN
  6. PANTOPRAZOLE [Concomitant]
     Active Substance: PANTOPRAZOLE
  7. ZOFRAN [Concomitant]
     Active Substance: ONDANSETRON HYDROCHLORIDE
  8. POTASSIUM PHOSPHATE                /00493501/ [Concomitant]
     Active Substance: POTASSIUM PHOSPHATE, DIBASIC
  9. BENADRYL [Concomitant]
     Active Substance: DIPHENHYDRAMINE HYDROCHLORIDE
  10. MINERAL OIL. [Concomitant]
     Active Substance: MINERAL OIL
     Route: 054
  11. NACL [Concomitant]
     Active Substance: SODIUM CHLORIDE
     Dosage: UNK
     Route: 042
     Dates: start: 20170814, end: 20170814
  12. BRENTUXIMAB VEDOTIN [Suspect]
     Active Substance: BRENTUXIMAB VEDOTIN
     Indication: HODGKIN^S DISEASE
     Dosage: 1.8 MG/KG, QCYCLE
     Route: 042
     Dates: start: 20170809, end: 20170809
  13. DOXORUBICIN [Suspect]
     Active Substance: DOXORUBICIN
     Indication: HODGKIN^S DISEASE
     Dosage: 25 MG/M2, QCYCLE
     Route: 040
     Dates: start: 20170809, end: 20170810
  14. ETOPOSIDE. [Suspect]
     Active Substance: ETOPOSIDE
     Indication: HODGKIN^S DISEASE
     Dosage: 125 MG/M2, QCYCLE
     Route: 042
     Dates: start: 20170809, end: 20170811
  15. FAT EMULSION NOS [Concomitant]
     Active Substance: EGG PHOSPHOLIPIDS\SAFFLOWER OIL\SOYBEAN OIL
  16. MIRALAX [Concomitant]
     Active Substance: POLYETHYLENE GLYCOL 3350
  17. CARAFATE [Concomitant]
     Active Substance: SUCRALFATE
  18. ZANTAC [Concomitant]
     Active Substance: RANITIDINE HYDROCHLORIDE
  19. NUTRIENTS NOS [Concomitant]
     Active Substance: UNSPECIFIED INGREDIENT
  20. SENNA                              /00142201/ [Concomitant]
     Active Substance: SENNA LEAF

REACTIONS (2)
  - Syncope [Recovered/Resolved]
  - Hypophosphataemia [Recovered/Resolved]

NARRATIVE: CASE EVENT DATE: 20170815
